FAERS Safety Report 24841155 (Version 1)
Quarter: 2025Q1

REPORT INFORMATION
  Report Type: Spontaneous
  Country: FI (occurrence: FI)
  Receive Date: 20250114
  Receipt Date: 20250114
  Transmission Date: 20250409
  Serious: Yes (Other)
  Sender: BAYER HEALTHCARE PHARMACEUTICALS INC.
  Company Number: FI-BAYER-2024A180249

PATIENT
  Age: 85 Year

DRUGS (2)
  1. KERENDIA [Suspect]
     Active Substance: FINERENONE
     Dates: start: 20231030, end: 20240209
  2. KERENDIA [Suspect]
     Active Substance: FINERENONE
     Dates: start: 20240209, end: 20240529

REACTIONS (3)
  - Albumin urine present [Unknown]
  - Diabetes mellitus [Not Recovered/Not Resolved]
  - Urine albumin/creatinine ratio increased [None]
